FAERS Safety Report 4708128-3 (Version None)
Quarter: 2005Q3

REPORT INFORMATION
  Report Type: 
  Country: None (occurrence: None)
  Receive Date: 20050707
  Receipt Date: 20050627
  Transmission Date: 20060218
  Serious: Yes (Hospitalization)
  Sender: FDA-Public Use
  Company Number: 2005UW09736

PATIENT
  Age: 56 Year
  Sex: Female

DRUGS (3)
  1. LOSEC [Suspect]
     Indication: HELICOBACTER INFECTION
     Route: 048
     Dates: start: 20050101
  2. TETRACYCLINE [Suspect]
     Indication: HELICOBACTER INFECTION
     Route: 048
  3. FLAGYL [Suspect]
     Indication: HELICOBACTER INFECTION
     Route: 048

REACTIONS (4)
  - PRURITUS [None]
  - RASH [None]
  - REFUSAL OF TREATMENT BY PATIENT [None]
  - RENAL PAIN [None]
